FAERS Safety Report 24134302 (Version 3)
Quarter: 2025Q1

REPORT INFORMATION
  Report Type: Spontaneous
  Country: US (occurrence: US)
  Receive Date: 20240725
  Receipt Date: 20250131
  Transmission Date: 20250408
  Serious: No
  Sender: SANOFI AVENTIS
  Company Number: US-SA-SAC20240722000403

PATIENT
  Age: 51 Year
  Sex: Male

DRUGS (6)
  1. DUPIXENT [Suspect]
     Active Substance: DUPILUMAB
     Indication: Dermatitis atopic
     Dosage: 300 MG, QOW
     Route: 058
     Dates: start: 202401, end: 202407
  2. DUPIXENT [Suspect]
     Active Substance: DUPILUMAB
     Route: 058
     Dates: start: 20231206, end: 20231206
  3. DUPIXENT [Suspect]
     Active Substance: DUPILUMAB
     Dosage: 300 MG, QOW
     Route: 058
     Dates: start: 202312
  4. VALTREX [Concomitant]
     Active Substance: VALACYCLOVIR HYDROCHLORIDE
  5. GABAPENTIN [Concomitant]
     Active Substance: GABAPENTIN
  6. NAPROXEN [Concomitant]
     Active Substance: NAPROXEN

REACTIONS (10)
  - Neuralgia [Unknown]
  - Fatigue [Unknown]
  - Limb injury [Unknown]
  - Pain in extremity [Unknown]
  - Eczema [Unknown]
  - Wound [Unknown]
  - Herpes zoster [Recovering/Resolving]
  - Musculoskeletal pain [Unknown]
  - Rash [Recovering/Resolving]
  - Arthralgia [Unknown]

NARRATIVE: CASE EVENT DATE: 20231201
